FAERS Safety Report 5479103-9 (Version None)
Quarter: 2007Q4

REPORT INFORMATION
  Report Type: 
  Country: None (occurrence: None)
  Receive Date: 20071002
  Receipt Date: 20070925
  Transmission Date: 20080405
  Serious: Yes (Death, Hospitalization)
  Sender: FDA-Public Use
  Company Number: 163-C5013-05090243

PATIENT
  Age: 80 Year
  Sex: Male
  Weight: 81 kg

DRUGS (2)
  1. CC-5013 (CAPSULES) [Suspect]
     Indication: MULTIPLE MYELOMA
     Dosage: 25 MG, QD, DAYS 1-21, Q28D, ORAL
     Route: 048
     Dates: start: 20050822, end: 20050911
  2. DEXAMETHASONE TAB [Suspect]
     Indication: MULTIPLE MYELOMA
     Dosage: 40 MG, QD, DAYS 1-4, 9-12, 17-20, Q28D, ORAL
     Route: 048
     Dates: start: 20050822, end: 20050910

REACTIONS (1)
  - SEPSIS [None]
